FAERS Safety Report 23428338 (Version 1)
Quarter: 2024Q1

REPORT INFORMATION
  Report Type: Spontaneous
  Country: US (occurrence: None)
  Receive Date: 20240120
  Receipt Date: 20240120
  Transmission Date: 20240410
  Serious: Yes (Other)
  Sender: FDA-Public Use
  Company Number: None

PATIENT
  Age: 72 Year
  Sex: Female
  Weight: 63.9 kg

DRUGS (21)
  1. ALENDRONATE SODIUM [Suspect]
     Active Substance: ALENDRONATE SODIUM
     Indication: Bone density abnormal
     Dosage: 1 TABLET ONCE EVERY WEEK ORAL
     Route: 048
     Dates: start: 20231114, end: 20231127
  2. FAMCICLOVIR [Concomitant]
     Active Substance: FAMCICLOVIR
  3. AMITRIPTYLINE [Concomitant]
     Active Substance: AMITRIPTYLINE
  4. FENTANYL [Concomitant]
     Active Substance: FENTANYL\FENTANYL CITRATE
  5. EXEMESTANE [Concomitant]
     Active Substance: EXEMESTANE
  6. BUDESONIDE [Concomitant]
     Active Substance: BUDESONIDE
  7. LIOTHYRONINE [Concomitant]
     Active Substance: LIOTHYRONINE
  8. LEVOTHYROXINE [Concomitant]
     Active Substance: LEVOTHYROXINE\LEVOTHYROXINE SODIUM
  9. Micronized Testosterone [Concomitant]
  10. PROGESTERONE [Concomitant]
     Active Substance: PROGESTERONE
  11. Micronized Pregnenolone [Concomitant]
  12. VITAMIN D3 [Concomitant]
     Active Substance: CHOLECALCIFEROL
  13. MENAQUINONE 6 [Concomitant]
     Active Substance: MENAQUINONE 6
  14. PRASTERONE [Concomitant]
     Active Substance: PRASTERONE
  15. Prebiotic [Concomitant]
  16. VINPOCETINE [Concomitant]
     Active Substance: VINPOCETINE
  17. Neuro-Mag [Concomitant]
  18. CURCUMIN [Concomitant]
     Active Substance: CURCUMIN
  19. BIOTIN [Concomitant]
     Active Substance: BIOTIN
  20. Bone Support [Concomitant]
  21. Phosphatidyl [Concomitant]

REACTIONS (10)
  - Bone density decreased [None]
  - Headache [None]
  - Bone pain [None]
  - Arthralgia [None]
  - Hypoaesthesia [None]
  - Paraesthesia [None]
  - Pain in extremity [None]
  - Muscle spasms [None]
  - Myalgia [None]
  - Arthralgia [None]

NARRATIVE: CASE EVENT DATE: 20231120
